FAERS Safety Report 4729368-3 (Version None)
Quarter: 2005Q3

REPORT INFORMATION
  Report Type: 
  Country: None (occurrence: None)
  Receive Date: 20050729
  Receipt Date: 20050628
  Transmission Date: 20060218
  Serious: Yes (Death, Hospitalization)
  Sender: FDA-Public Use
  Company Number: PHBS2005JP09283

PATIENT
  Age: 79 Year
  Sex: Female

DRUGS (5)
  1. TEGRETOL [Suspect]
     Dosage: 400 MG, QD
     Route: 048
     Dates: start: 20050621, end: 20050624
  2. ARICEPT [Suspect]
     Dosage: 3 MG, QD
     Route: 048
     Dates: start: 20050621, end: 20050624
  3. LUVOX [Suspect]
     Indication: DEPRESSION
     Dosage: 50 MG, QD
     Route: 048
     Dates: start: 20050613, end: 20050624
  4. ALPRAZOLAM [Concomitant]
     Route: 065
     Dates: start: 20050621, end: 20050624
  5. BROTIZOLAM [Concomitant]
     Route: 065
     Dates: start: 20050613, end: 20050624

REACTIONS (6)
  - BLOOD CREATINE PHOSPHOKINASE INCREASED [None]
  - HYPOKINESIA [None]
  - NEUROLEPTIC MALIGNANT SYNDROME [None]
  - PYREXIA [None]
  - RENAL FAILURE ACUTE [None]
  - RHABDOMYOLYSIS [None]
